FAERS Safety Report 5303198-6 (Version None)
Quarter: 2007Q2

REPORT INFORMATION
  Report Type: 
  Country: None (occurrence: None)
  Receive Date: 20070420
  Receipt Date: 20070412
  Transmission Date: 20071010
  Serious: Yes (Life-Threatening, Hospitalization)
  Sender: FDA-Public Use
  Company Number: IN-ROCHE-492120

PATIENT
  Age: 50 Year
  Sex: Male

DRUGS (7)
  1. ZENAPAX [Suspect]
     Dosage: DOSE INFUSED OVER 30 MINS
     Route: 042
     Dates: start: 20070321
  2. RIFAMPICIN [Concomitant]
     Indication: TUBERCULOSIS
  3. ISONIAZID [Concomitant]
     Indication: TUBERCULOSIS
  4. ETHAMBUTOL HYDROCHLORIDE [Concomitant]
     Indication: TUBERCULOSIS
  5. PREDNISOLONE [Concomitant]
     Indication: RENAL TRANSPLANT
  6. MYCOPHENOLATE MOFETIL [Concomitant]
     Indication: RENAL TRANSPLANT
  7. CYCLOSPORINE [Concomitant]
     Indication: RENAL TRANSPLANT

REACTIONS (1)
  - ANAPHYLACTIC SHOCK [None]
